FAERS Safety Report 10188612 (Version 1)
Quarter: 2014Q2

REPORT INFORMATION
  Report Type: Spontaneous
  Country: US (occurrence: US)
  Receive Date: 20140522
  Receipt Date: 20140522
  Transmission Date: 20141212
  Serious: No
  Sender: FDA-Public Use
  Company Number: US-SA-2014SA016430

PATIENT
  Age: 84 Year
  Sex: Female
  Weight: 81.6 kg

DRUGS (6)
  1. LANTUS SOLOSTAR [Suspect]
     Indication: TYPE 2 DIABETES MELLITUS
     Dosage: PRODUCT START DATE - 3 WEEKS AGO DOSE:10 UNIT(S)
     Route: 051
     Dates: start: 20140124
  2. SOLOSTAR [Concomitant]
  3. ENALAPRIL [Concomitant]
     Indication: BLOOD PRESSURE
  4. LEVOTHYROXINE [Concomitant]
     Indication: THYROID DISORDER
  5. NATEGLINIDE [Concomitant]
     Indication: DIABETES MELLITUS
  6. ZOLOFT [Concomitant]

REACTIONS (2)
  - Malaise [Unknown]
  - Underdose [Unknown]
